FAERS Safety Report 16524056 (Version 1)
Quarter: 2019Q3

REPORT INFORMATION
  Report Type: Spontaneous
  Country: US (occurrence: US)
  Receive Date: 20190703
  Receipt Date: 20190703
  Transmission Date: 20191004
  Serious: No
  Sender: FDA-Public Use
  Company Number: US-ASTRAZENECA-2019SE84959

PATIENT
  Age: 27381 Day
  Sex: Male
  Weight: 85.3 kg

DRUGS (2)
  1. ADVAIR HFA [Concomitant]
     Active Substance: FLUTICASONE PROPIONATE\SALMETEROL XINAFOATE
     Route: 065
  2. FASENRA [Suspect]
     Active Substance: BENRALIZUMAB
     Indication: ASTHMA
     Dosage: ONE INJECTION EVERY 4 WEEKS FOR THE FIRST THREE DOSES FOLLOWED BY EVERY 8 WEEKS
     Route: 058
     Dates: start: 20190410

REACTIONS (6)
  - Malaise [Not Recovered/Not Resolved]
  - Cough [Recovering/Resolving]
  - Feeling cold [Unknown]
  - Nasal congestion [Not Recovered/Not Resolved]
  - Influenza [Not Recovered/Not Resolved]
  - Pyrexia [Unknown]

NARRATIVE: CASE EVENT DATE: 20190529
